FAERS Safety Report 12892289 (Version 1)
Quarter: 2016Q4

REPORT INFORMATION
  Report Type: Spontaneous
  Country: US (occurrence: US)
  Receive Date: 20161027
  Receipt Date: 20161027
  Transmission Date: 20170207
  Serious: No
  Sender: FDA-Public Use
  Company Number: None

PATIENT
  Age: 22 Year
  Sex: Female
  Weight: 73.48 kg

DRUGS (3)
  1. XURIDEN [Concomitant]
     Active Substance: URIDINE TRIACETATE
  2. ZOLOFT [Suspect]
     Active Substance: SERTRALINE HYDROCHLORIDE
     Indication: TIC
     Dosage: ZOLOFT - FOR ONE DAY IN OCT. 2016
     Route: 048
     Dates: start: 201610, end: 201610
  3. PROVERA [Concomitant]
     Active Substance: MEDROXYPROGESTERONE ACETATE

REACTIONS (1)
  - Psychomotor hyperactivity [None]

NARRATIVE: CASE EVENT DATE: 201610
